FAERS Safety Report 15680264 (Version 3)
Quarter: 2019Q1

REPORT INFORMATION
  Report Type: Spontaneous
  Country: US (occurrence: US)
  Receive Date: 20181203
  Receipt Date: 20190131
  Transmission Date: 20190417
  Serious: No
  Sender: FDA-Public Use
  Company Number: US-TEVA-2018-US-975330

PATIENT
  Sex: Female

DRUGS (3)
  1. SYNTHROID 0.88 [Concomitant]
  2. RISEDRONIC SODIUM [Suspect]
     Active Substance: RISEDRONIC ACID
     Dosage: 150 MILLIGRAM DAILY;
     Dates: start: 20181102, end: 20181102
  3. BRIMONIDINE TARTRATE OPTHALMIC 2% [Concomitant]

REACTIONS (5)
  - Pain in extremity [Not Recovered/Not Resolved]
  - Arthralgia [Not Recovered/Not Resolved]
  - Gait disturbance [Not Recovered/Not Resolved]
  - Muscular weakness [Not Recovered/Not Resolved]
  - Back pain [Not Recovered/Not Resolved]
